FAERS Safety Report 19194933 (Version 1)
Quarter: 2021Q2

REPORT INFORMATION
  Report Type: Other
  Country: IE (occurrence: IE)
  Receive Date: 20210429
  Receipt Date: 20210429
  Transmission Date: 20210717
  Serious: Yes (Other)
  Sender: FDA-Public Use
  Company Number: IE-ASPEN-GLO2021IE001075

PATIENT

DRUGS (8)
  1. DEXAMETHASONE. [Suspect]
     Active Substance: DEXAMETHASONE
     Indication: ACUTE LYMPHOCYTIC LEUKAEMIA
     Dosage: UKALL 2011 PROTOCOL REGIMEN A
     Route: 065
     Dates: start: 2013, end: 2016
  2. METHOTREXATE. [Suspect]
     Active Substance: METHOTREXATE
     Indication: ACUTE LYMPHOCYTIC LEUKAEMIA
     Dosage: UKALL 2011 PROTOCOL REGIMEN A
     Route: 065
     Dates: start: 2013, end: 2016
  3. MERCAPTOPURINE. [Suspect]
     Active Substance: MERCAPTOPURINE
     Indication: ACUTE LYMPHOCYTIC LEUKAEMIA
     Dosage: UKALL 2011 PROTOCOL REGIMEN A
     Route: 065
     Dates: start: 2013, end: 2016
  4. DOXIL [Suspect]
     Active Substance: DOXORUBICIN HYDROCHLORIDE
     Indication: ACUTE LYMPHOCYTIC LEUKAEMIA
     Dosage: UKALL 2011 PROTOCOL REGIMEN A, LIPOSOMAL INFUSION
     Route: 065
     Dates: start: 2013, end: 2016
  5. CYTARABINE. [Suspect]
     Active Substance: CYTARABINE
     Indication: ACUTE LYMPHOCYTIC LEUKAEMIA
     Dosage: UKALL 2011 PROTOCOL REGIMEN A
     Route: 065
     Dates: start: 2013, end: 2016
  6. VINCRISTINE [Suspect]
     Active Substance: VINCRISTINE
     Indication: ACUTE LYMPHOCYTIC LEUKAEMIA
     Dosage: UKALL 2011 PROTOCOL REGIMEN A
     Route: 065
     Dates: start: 2013, end: 2016
  7. PEGASPARGASE [Suspect]
     Active Substance: PEGASPARGASE
     Indication: ACUTE LYMPHOCYTIC LEUKAEMIA
     Dosage: UKALL 2011 PROTOCOL REGIMEN A
     Route: 065
     Dates: start: 2013, end: 2016
  8. ENDOXANA [Suspect]
     Active Substance: CYCLOPHOSPHAMIDE
     Indication: ACUTE LYMPHOCYTIC LEUKAEMIA
     Dosage: UKALL 2011 PROTOCOL REGIMEN A
     Route: 065
     Dates: start: 2013, end: 2016

REACTIONS (3)
  - Lentigo [Unknown]
  - Rash [Unknown]
  - Multiple lentigines syndrome [Unknown]

NARRATIVE: CASE EVENT DATE: 2016
